FAERS Safety Report 12070629 (Version 2)
Quarter: 2016Q1

REPORT INFORMATION
  Report Type: Spontaneous
  Country: US (occurrence: US)
  Receive Date: 20160211
  Receipt Date: 20160211
  Transmission Date: 20160526
  Serious: Yes (Hospitalization)
  Sender: FDA-Public Use
  Company Number: US-SA-2016SA023221

PATIENT
  Sex: Female

DRUGS (1)
  1. LASIX [Suspect]
     Active Substance: FUROSEMIDE
     Route: 065

REACTIONS (5)
  - Mitral valve replacement [Unknown]
  - Headache [Unknown]
  - Pollakiuria [Unknown]
  - Dyspnoea [Unknown]
  - Vascular graft [Unknown]
